FAERS Safety Report 21003010 (Version 1)
Quarter: 2022Q2

REPORT INFORMATION
  Report Type: Spontaneous
  Country: US (occurrence: None)
  Receive Date: 20220623
  Receipt Date: 20220623
  Transmission Date: 20220720
  Serious: Yes (Other)
  Sender: FDA-Public Use
  Company Number: None

PATIENT
  Age: 64 Year
  Sex: Female
  Weight: 97.7 kg

DRUGS (1)
  1. BEBTELOVIMAB [Suspect]
     Active Substance: BEBTELOVIMAB
     Indication: COVID-19
     Route: 042
     Dates: start: 20220602, end: 20220602

REACTIONS (3)
  - Muscle spasms [None]
  - Muscle spasms [None]
  - Muscle tightness [None]

NARRATIVE: CASE EVENT DATE: 20220602
